FAERS Safety Report 18288101 (Version 1)
Quarter: 2020Q3

REPORT INFORMATION
  Report Type: Spontaneous
  Country: GB (occurrence: GB)
  Receive Date: 20200921
  Receipt Date: 20200921
  Transmission Date: 20201103
  Serious: Yes (Hospitalization, Other)
  Sender: FDA-Public Use
  Company Number: GB-ROCHE-2679386

PATIENT
  Age: 22 Year
  Sex: Female

DRUGS (1)
  1. OCREVUS [Suspect]
     Active Substance: OCRELIZUMAB
     Indication: MULTIPLE SCLEROSIS
     Route: 065
     Dates: start: 201904

REACTIONS (5)
  - Rhinitis [Unknown]
  - JC polyomavirus test positive [Unknown]
  - Productive cough [Unknown]
  - Magnetic resonance imaging abnormal [Unknown]
  - Neutrophil count decreased [Recovered/Resolved]
